FAERS Safety Report 20904949 (Version 1)
Quarter: 2022Q2

REPORT INFORMATION
  Report Type: Spontaneous
  Country: US (occurrence: None)
  Receive Date: 20220601
  Receipt Date: 20220601
  Transmission Date: 20220721
  Serious: No
  Sender: FDA-Public Use
  Company Number: None

PATIENT
  Age: 70 Year
  Sex: Male

DRUGS (1)
  1. OPSUMIT [Suspect]
     Active Substance: MACITENTAN
     Dosage: FREQUENCY : DAILY;?
     Route: 048
     Dates: start: 20220503, end: 20220601

REACTIONS (4)
  - Fatigue [None]
  - Nasal congestion [None]
  - Fluid retention [None]
  - Therapy cessation [None]

NARRATIVE: CASE EVENT DATE: 20220601
